FAERS Safety Report 14563044 (Version 1)
Quarter: 2018Q1

REPORT INFORMATION
  Report Type: Spontaneous
  Country: US (occurrence: US)
  Receive Date: 20180221
  Receipt Date: 20180221
  Transmission Date: 20180509
  Serious: No
  Sender: FDA-Public Use
  Company Number: None

PATIENT
  Age: 31 Year

DRUGS (1)
  1. MIRENA [Suspect]
     Active Substance: LEVONORGESTREL

REACTIONS (13)
  - Alopecia [None]
  - Loss of libido [None]
  - Tachyphrenia [None]
  - Weight increased [None]
  - Abdominal pain [None]
  - Fatigue [None]
  - Migraine [None]
  - Confusional state [None]
  - Depression [None]
  - Vaginal pH abnormal [None]
  - Bacterial vaginosis [None]
  - Memory impairment [None]
  - Feeling abnormal [None]

NARRATIVE: CASE EVENT DATE: 20140401
